FAERS Safety Report 4786153-4 (Version None)
Quarter: 2005Q3

REPORT INFORMATION
  Report Type: 
  Country: None (occurrence: None)
  Receive Date: 20050930
  Receipt Date: 20050930
  Transmission Date: 20060218
  Serious: Yes (Other)
  Sender: FDA-Public Use
  Company Number: None

PATIENT
  Age: 51 Year
  Sex: Female
  Weight: 77.1115 kg

DRUGS (4)
  1. TOPROL-XL [Suspect]
  2. TOPAMAX [Suspect]
     Indication: HEART RATE INCREASED
     Dosage: 25 MG DAILY PO
     Route: 048
     Dates: start: 20020304, end: 20030127
  3. TOPAMAX [Suspect]
     Indication: HYPERTENSION
     Dosage: 25 MG DAILY PO
     Route: 048
     Dates: start: 20020304, end: 20030127
  4. TRAZODONE [Concomitant]

REACTIONS (4)
  - DRUG DISPENSING ERROR [None]
  - MEDICATION ERROR [None]
  - SEDATION [None]
  - WRONG DRUG ADMINISTERED [None]
